FAERS Safety Report 24388387 (Version 1)
Quarter: 2024Q4

REPORT INFORMATION
  Report Type: Spontaneous
  Country: US (occurrence: US)
  Receive Date: 20241002
  Receipt Date: 20241002
  Transmission Date: 20250114
  Serious: No
  Sender: SANOFI AVENTIS
  Company Number: US-SA-2024SA281087

PATIENT
  Age: 23 Year
  Sex: Female
  Weight: 113.64 kg

DRUGS (1)
  1. DUPIXENT [Suspect]
     Active Substance: DUPILUMAB
     Indication: Asthma
     Dosage: 300 MG, QOW
     Route: 058
     Dates: start: 202408

REACTIONS (5)
  - Skin warm [Unknown]
  - Skin exfoliation [Unknown]
  - Erythema [Unknown]
  - Injection site erythema [Unknown]
  - Rash [Unknown]

NARRATIVE: CASE EVENT DATE: 20240101
